FAERS Safety Report 5943423-1 (Version None)
Quarter: 2008Q4

REPORT INFORMATION
  Report Type: 
  Country: None (occurrence: None)
  Receive Date: 20081106
  Receipt Date: 20081030
  Transmission Date: 20090506
  Serious: Yes (Death, Hospitalization)
  Sender: FDA-Public Use
  Company Number: US-GENENTECH-269583

PATIENT
  Sex: Male

DRUGS (9)
  1. RITUXAN [Suspect]
     Indication: IDIOPATHIC THROMBOCYTOPENIC PURPURA
     Dosage: 750 MG, 1/WEEK
     Route: 042
     Dates: start: 20080908
  2. PEPCID [Concomitant]
     Indication: DRUG USE FOR UNKNOWN INDICATION
     Dosage: 40 MG, QD
  3. INSULIN [Concomitant]
     Indication: DRUG USE FOR UNKNOWN INDICATION
  4. LACTOBACILLUS ACIDOPHILUS [Concomitant]
     Indication: DRUG USE FOR UNKNOWN INDICATION
     Dosage: 2 CAPFUL, BID
  5. XOPENEX [Concomitant]
     Indication: DRUG USE FOR UNKNOWN INDICATION
     Dosage: 1.25 MG, Q8H
  6. METOPROLOL SUCCINATE [Concomitant]
     Indication: HYPERTENSION
     Dosage: 50 MG, QD
     Route: 048
  7. ZOSYN [Concomitant]
     Indication: DRUG USE FOR UNKNOWN INDICATION
     Dosage: 3.375 MG, Q6H
     Route: 042
  8. PREDNISONE TAB [Concomitant]
     Indication: DRUG USE FOR UNKNOWN INDICATION
     Dosage: 20 MG, QD
  9. VANCOMYCIN [Concomitant]
     Indication: DRUG USE FOR UNKNOWN INDICATION
     Dosage: 1500 MG, QD
     Route: 042

REACTIONS (2)
  - DEATH [None]
  - LARGE INTESTINE PERFORATION [None]
